FAERS Safety Report 4404639-9 (Version None)
Quarter: 2004Q3

REPORT INFORMATION
  Report Type: 
  Country: None (occurrence: None)
  Receive Date: 20040720
  Receipt Date: 20040706
  Transmission Date: 20050211
  Serious: Yes (Hospitalization)
  Sender: FDA-Public Use
  Company Number: 2004220019FR

PATIENT
  Age: 59 Year
  Sex: Male

DRUGS (3)
  1. XALATAN [Suspect]
     Dosage: 1 GTT, QD, OPHTHALMIC
     Route: 047
     Dates: start: 20030728
  2. FRACTAL (FLUVASTATIN) [Concomitant]
  3. AMARYL [Concomitant]

REACTIONS (3)
  - EYE BURNS [None]
  - EYE PAIN [None]
  - FOREIGN BODY TRAUMA [None]
